FAERS Safety Report 16157666 (Version 2)
Quarter: 2019Q2

REPORT INFORMATION
  Report Type: Spontaneous
  Country: US (occurrence: US)
  Receive Date: 20190404
  Receipt Date: 20190408
  Transmission Date: 20190711
  Serious: Yes (Death)
  Sender: FDA-Public Use
  Company Number: US-ROCHE-2296122

PATIENT
  Age: 61 Year
  Sex: Female

DRUGS (9)
  1. OCREVUS [Suspect]
     Active Substance: OCRELIZUMAB
     Route: 048
     Dates: start: 20181008
  2. AMANTADINE. [Concomitant]
     Active Substance: AMANTADINE HYDROCHLORIDE
  3. ATORVASTATIN [Concomitant]
     Active Substance: ATORVASTATIN
  4. NEURONTIN [Concomitant]
     Active Substance: GABAPENTIN
  5. AMPYRA [Concomitant]
     Active Substance: DALFAMPRIDINE
  6. BACLOFEN. [Concomitant]
     Active Substance: BACLOFEN
     Dosage: PUMP
     Route: 065
  7. OCREVUS [Suspect]
     Active Substance: OCRELIZUMAB
     Indication: RELAPSING-REMITTING MULTIPLE SCLEROSIS
     Dosage: EVERY 6 MONTHS?STRENGHTH :300MG/10ML
     Route: 048
     Dates: start: 20180913
  8. OCREVUS [Suspect]
     Active Substance: OCRELIZUMAB
     Route: 048
     Dates: start: 201707
  9. AMITIZA [Concomitant]
     Active Substance: LUBIPROSTONE

REACTIONS (1)
  - Death [Fatal]

NARRATIVE: CASE EVENT DATE: 20190323
